FAERS Safety Report 8315002-2 (Version None)
Quarter: 2012Q2

REPORT INFORMATION
  Report Type: 
  Country: None (occurrence: None)
  Receive Date: 20120426
  Receipt Date: 20120210
  Transmission Date: 20120825
  Serious: No
  Sender: FDA-Public Use
  Company Number: US-MUTUAL PHARMACEUTICAL COMPANY, INC.-CLCY20120035

PATIENT
  Sex: Male
  Weight: 81.72 kg

DRUGS (2)
  1. COLCRYS [Suspect]
     Indication: GOUT
     Route: 048
     Dates: start: 20120203
  2. ULORIC [Concomitant]
     Indication: GOUT
     Route: 048

REACTIONS (1)
  - DRUG EFFECT DECREASED [None]
